FAERS Safety Report 5019188-7 (Version None)
Quarter: 2006Q2

REPORT INFORMATION
  Report Type: 
  Country: None (occurrence: None)
  Receive Date: 20060531
  Receipt Date: 20060522
  Transmission Date: 20061013
  Serious: Yes (Hospitalization)
  Sender: FDA-Public Use
  Company Number: 2006-05-1904

PATIENT
  Age: 75 Year
  Sex: Male

DRUGS (5)
  1. CLARITIN [Suspect]
     Indication: RHINITIS ALLERGIC
     Dosage: 10 MG, ORAL
     Route: 048
     Dates: start: 20060407, end: 20060408
  2. AVELOX [Suspect]
     Indication: BRONCHITIS ACUTE
     Dosage: 400 MG ORAL
     Route: 048
     Dates: start: 20060406, end: 20060409
  3. CEFTRIAXONE SODIUM INJECTABLE POWDER [Suspect]
     Indication: BRONCHITIS ACUTE
     Dosage: 2 G INTRAVENOUS
     Route: 042
     Dates: start: 20060409, end: 20060409
  4. MUCOSOLVAN CAPSULES [Suspect]
  5. HOKUNALIN INJECTABLE SOLUTION [Concomitant]

REACTIONS (4)
  - COUGH [None]
  - HEPATIC FUNCTION ABNORMAL [None]
  - PRODUCTIVE COUGH [None]
  - PYREXIA [None]
